FAERS Safety Report 7207016-0 (Version None)
Quarter: 2011Q1

REPORT INFORMATION
  Report Type: 
  Country: None (occurrence: None)
  Receive Date: 20110103
  Receipt Date: 20101228
  Transmission Date: 20110831
  Serious: Yes (Hospitalization)
  Sender: FDA-Public Use
  Company Number: B0670264A

PATIENT
  Age: 38 Year
  Sex: Female

DRUGS (1)
  1. AUGMENTIN [Suspect]
     Route: 048
     Dates: start: 20000101, end: 20000101

REACTIONS (4)
  - DRUG HYPERSENSITIVITY [None]
  - ANGIOEDEMA [None]
  - OROPHARYNGEAL DISCOMFORT [None]
  - FACE OEDEMA [None]
